FAERS Safety Report 5517433-2 (Version None)
Quarter: 2007Q4

REPORT INFORMATION
  Report Type: 
  Country: None (occurrence: None)
  Receive Date: 20071114
  Receipt Date: 20071105
  Transmission Date: 20080405
  Serious: Yes (Hospitalization)
  Sender: FDA-Public Use
  Company Number: FR-ASTRAZENECA-2007CG01555

PATIENT
  Age: 17370 Day
  Sex: Male

DRUGS (10)
  1. INEXIUM [Suspect]
     Route: 048
     Dates: end: 20070823
  2. RAMIPRIL [Suspect]
     Route: 048
     Dates: end: 20070823
  3. VANCOMYCIN [Suspect]
     Route: 042
     Dates: start: 20070802, end: 20070824
  4. ISOPTIN [Suspect]
     Route: 048
     Dates: start: 20070819, end: 20070822
  5. IMOVANE [Suspect]
     Route: 048
     Dates: end: 20070821
  6. RIFAMPICIN [Suspect]
     Dates: end: 20070824
  7. ASPEGIC 1000 [Suspect]
     Route: 048
     Dates: end: 20070826
  8. CORDARONE [Concomitant]
     Route: 048
     Dates: end: 20070826
  9. SINTROM [Concomitant]
     Route: 048
     Dates: end: 20070823
  10. CUBICIN [Concomitant]

REACTIONS (4)
  - DRUG RASH WITH EOSINOPHILIA AND SYSTEMIC SYMPTOMS [None]
  - ENDOCARDITIS [None]
  - RENAL FAILURE [None]
  - STAPHYLOCOCCAL INFECTION [None]
